FAERS Safety Report 5570204-3 (Version None)
Quarter: 2007Q4

REPORT INFORMATION
  Report Type: 
  Country: None (occurrence: None)
  Receive Date: 20071217
  Receipt Date: 20020527
  Transmission Date: 20080405
  Serious: Yes (Hospitalization)
  Sender: FDA-Public Use
  Company Number: 2007SP024034

PATIENT
  Age: 33 Year
  Sex: Male

DRUGS (2)
  1. PEG-INTRON [Suspect]
     Indication: HEPATITIS C
     Dosage: 70 MCG; QW; SC
     Route: 058
     Dates: start: 20010323, end: 20010402
  2. REBETOL [Suspect]
     Indication: HEPATITIS C
     Dosage: 1000 MG; QD; PO
     Route: 048
     Dates: start: 20010323, end: 20010402

REACTIONS (3)
  - DEPRESSION [None]
  - DUODENAL ULCER [None]
  - PSORIASIS [None]
